FAERS Safety Report 10040086 (Version 2)
Quarter: 2014Q2

REPORT INFORMATION
  Report Type: Spontaneous
  Country: US (occurrence: US)
  Receive Date: 20140326
  Receipt Date: 20140404
  Transmission Date: 20141212
  Serious: No
  Sender: FDA-Public Use
  Company Number: US-009507513-1403USA005952

PATIENT
  Age: 76 Year
  Sex: Female
  Weight: 57.6 kg

DRUGS (8)
  1. OXYTROL FOR WOMEN [Suspect]
     Indication: URINARY INCONTINENCE
     Dosage: UNK, UNKNOWN
     Route: 062
     Dates: start: 20131220, end: 20140214
  2. ARMOUR THYROID TABLETS [Concomitant]
     Indication: THYROID DISORDER
     Dosage: UNK, UNKNOWN
  3. RAMIPRIL [Concomitant]
     Indication: THYROID DISORDER
     Dosage: UNK, UNKNOWN
  4. PRAVASTATIN SODIUM [Concomitant]
     Indication: LOW DENSITY LIPOPROTEIN INCREASED
     Dosage: UNK, UNKNOWN
  5. VITAMINS (UNSPECIFIED) [Concomitant]
     Indication: PRODUCT USED FOR UNKNOWN INDICATION
     Dosage: UNK, UNKNOWN
  6. MILK THISTLE [Concomitant]
     Indication: PRODUCT USED FOR UNKNOWN INDICATION
     Dosage: UNK, UNKNOWN
  7. OMEGA-3 MARINE TRIGLYCERIDES [Concomitant]
     Indication: PRODUCT USED FOR UNKNOWN INDICATION
     Dosage: UNK, UNKNOWN
  8. CHOLECALCIFEROL [Concomitant]
     Indication: PRODUCT USED FOR UNKNOWN INDICATION
     Dosage: UNK, UNKNOWN

REACTIONS (2)
  - Application site pain [Recovered/Resolved]
  - Application site erythema [Recovered/Resolved]
